FAERS Safety Report 7235295 (Version 2)
Quarter: 2013Q1

REPORT INFORMATION
  Report Type: Spontaneous
  Country: PL (occurrence: PL)
  Receive Date: 20091231
  Receipt Date: 20130305
  Transmission Date: 20140127
  Serious: Yes (Hospitalization, Other)
  Sender: FDA-Public Use
  Company Number: PHHY2009PL55773

PATIENT
  Age: 48 Year
  Sex: Male
  Weight: 59 kg

DRUGS (3)
  1. MYFORTIC [Suspect]
     Indication: RENAL TRANSPLANT
     Dosage: 720 MG, BID
     Route: 048
     Dates: start: 20090529
  2. TACROLIMUS [Concomitant]
     Indication: RENAL TRANSPLANT
     Dosage: 12 MG /24H
     Dates: start: 20090529
  3. ENCORTON [Concomitant]
     Indication: RENAL TRANSPLANT
     Dosage: 15 MG/24H
     Dates: start: 20090706

REACTIONS (18)
  - Nephropathy toxic [Unknown]
  - Complications of transplanted kidney [Unknown]
  - Blood creatinine increased [Unknown]
  - Cytomegalovirus infection [Recovering/Resolving]
  - Vomiting [Unknown]
  - Diarrhoea [Unknown]
  - Nausea [Unknown]
  - Dyspepsia [Unknown]
  - Myocardial ischaemia [Unknown]
  - Ventricular tachycardia [Unknown]
  - Syncope [Unknown]
  - Diabetes mellitus [Unknown]
  - Hyperglycaemia [Unknown]
  - Kidney transplant rejection [Unknown]
  - Lung disorder [Unknown]
  - Lipid metabolism disorder [Unknown]
  - Anaemia [Unknown]
  - Immunosuppressant drug level increased [Recovering/Resolving]
